FAERS Safety Report 6469733-X (Version None)
Quarter: 2009Q4

REPORT INFORMATION
  Report Type: 
  Country: None (occurrence: None)
  Receive Date: 20091203
  Receipt Date: 20071203
  Transmission Date: 20100525
  Serious: Yes (Death, Hospitalization, Other)
  Sender: FDA-Public Use
  Company Number: JP-ELI_LILLY_AND_COMPANY-JP200710007118

PATIENT
  Sex: Male
  Weight: 51.7 kg

DRUGS (10)
  1. PEMETREXED [Suspect]
     Indication: PLEURAL MESOTHELIOMA MALIGNANT
     Dosage: 700 MG, OTHER
     Route: 042
     Dates: start: 20071004
  2. PARAPLATIN [Concomitant]
     Indication: PLEURAL MESOTHELIOMA MALIGNANT
     Dosage: 330 MG, OTHER
     Route: 042
     Dates: start: 20071004
  3. PANVITAN [Concomitant]
     Dosage: 1 G, DAILY (1/D)
     Route: 048
     Dates: start: 20070927, end: 20071018
  4. METHYCOBAL [Concomitant]
     Dosage: 1 MG, DAILY (1/D)
     Route: 030
     Dates: start: 20070927, end: 20070927
  5. DECADRON [Concomitant]
     Indication: PROPHYLAXIS
     Dosage: 8 MG, DAILY (1/D)
     Route: 042
     Dates: start: 20071004, end: 20071004
  6. NASEA [Concomitant]
     Indication: PROPHYLAXIS
     Dosage: 1 D/F, DAILY (1/D)
     Route: 042
     Dates: start: 20071004, end: 20071004
  7. NOVOLIN R [Concomitant]
     Indication: DIABETES MELLITUS
     Route: 058
     Dates: start: 20071005, end: 20071015
  8. OXYCONTIN [Concomitant]
     Indication: CANCER PAIN
     Dosage: 10 MG, DAILY (1/D)
     Route: 048
     Dates: start: 20070919, end: 20071007
  9. LOXONIN [Concomitant]
     Indication: CANCER PAIN
     Dosage: 180 MG, DAILY (1/D)
     Route: 048
     Dates: start: 20070919, end: 20071007
  10. ALBUMIN (HUMAN) [Concomitant]
     Indication: HYPOALBUMINAEMIA
     Dosage: 100 ML, DAILY (1/D)
     Route: 042
     Dates: start: 20071018, end: 20071019

REACTIONS (6)
  - BLOOD SODIUM DECREASED [None]
  - DISSEMINATED INTRAVASCULAR COAGULATION [None]
  - NEUTROPHIL COUNT DECREASED [None]
  - PNEUMONIA [None]
  - SEPSIS [None]
  - THROMBOCYTOPENIA [None]
